FAERS Safety Report 17413287 (Version 1)
Quarter: 2020Q1

REPORT INFORMATION
  Report Type: Spontaneous
  Country: US (occurrence: US)
  Receive Date: 20200213
  Receipt Date: 20200213
  Transmission Date: 20200409
  Serious: Yes (Other)
  Sender: FDA-Public Use
  Company Number: US-AMGEN-USASP2020022983

PATIENT
  Age: 76 Year
  Sex: Female

DRUGS (3)
  1. PROLIA [Suspect]
     Active Substance: DENOSUMAB
     Indication: OSTEOPOROSIS POSTMENOPAUSAL
     Dosage: 60 MILLIGRAM
     Route: 065
     Dates: start: 20140618
  2. VITAMIN D [COLECALCIFEROL] [Concomitant]
     Active Substance: CHOLECALCIFEROL
     Dosage: 50000 IU, 2 TIMES/WK
  3. CALCIUM [Concomitant]
     Active Substance: CALCIUM
     Dosage: 4000 MILLIGRAM, QD

REACTIONS (2)
  - Urinary tract infection [Unknown]
  - Coeliac disease [Recovered/Resolved]

NARRATIVE: CASE EVENT DATE: 2015
